FAERS Safety Report 6670236-8 (Version None)
Quarter: 2010Q2

REPORT INFORMATION
  Report Type: 
  Country: None (occurrence: None)
  Receive Date: 20100406
  Receipt Date: 20100318
  Transmission Date: 20101027
  Serious: No
  Sender: FDA-Public Use
  Company Number: US-ALLERGAN-1003620US

PATIENT
  Age: 68 Year
  Sex: Female

DRUGS (5)
  1. LATISSE [Suspect]
     Indication: GROWTH OF EYELASHES
     Dosage: 1 - 2 GTT, QOD
     Dates: start: 20091001
  2. NAPHCON-A [Concomitant]
  3. FLAGYL [Concomitant]
     Indication: DIVERTICULITIS
  4. CIPRO                              /00697201/ [Concomitant]
     Indication: DIVERTICULITIS
  5. ZITHROMAX [Concomitant]
     Indication: NASOPHARYNGITIS

REACTIONS (4)
  - MADAROSIS [None]
  - SKIN DISCOLOURATION [None]
  - TRICHORRHEXIS [None]
  - WRONG TECHNIQUE IN DRUG USAGE PROCESS [None]
